FAERS Safety Report 7376106-4 (Version None)
Quarter: 2011Q1

REPORT INFORMATION
  Report Type: 
  Country: None (occurrence: None)
  Receive Date: 20110317
  Receipt Date: 20110309
  Transmission Date: 20110831
  Serious: Yes (Death, Other)
  Sender: FDA-Public Use
  Company Number: 2011SP010663

PATIENT
  Age: 68 Year
  Sex: Male
  Weight: 70 kg

DRUGS (2)
  1. RADIOTHERAPY (THERAPEUTIC RADIOPHARMACEUTICALS) [Suspect]
     Indication: GLIOBLASTOMA
     Dates: start: 20050524, end: 20050630
  2. TEMODAL [Suspect]
     Indication: GLIOBLASTOMA
     Dosage: 155 MG; QD; PO
     Route: 048
     Dates: start: 20050524, end: 20050621

REACTIONS (1)
  - PANCYTOPENIA [None]
